FAERS Safety Report 8447131-7 (Version None)
Quarter: 2012Q2

REPORT INFORMATION
  Report Type: 
  Country: None (occurrence: None)
  Receive Date: 20120619
  Receipt Date: 20110824
  Transmission Date: 20120825
  Serious: No
  Sender: FDA-Public Use
  Company Number: US-PFIZER INC-K201100988

PATIENT
  Sex: Female
  Weight: 139.23 kg

DRUGS (6)
  1. LEVOXYL [Suspect]
     Indication: HYPOTHYROIDISM
     Dosage: 112 UG, 1X/DAY
     Route: 048
     Dates: start: 20010101
  2. NORVASC [Concomitant]
     Dosage: UNK
  3. CELEXA [Concomitant]
     Dosage: UNK
  4. HYDROCHLOROTHIAZIDE [Concomitant]
     Dosage: UNK
  5. OMEPRAZOLE [Concomitant]
     Dosage: UNK
  6. AMBIEN [Concomitant]
     Dosage: UNK

REACTIONS (1)
  - INTERCEPTED DRUG DISPENSING ERROR [None]
